FAERS Safety Report 4354281-3 (Version None)
Quarter: 2004Q2

REPORT INFORMATION
  Report Type: 
  Country: None (occurrence: None)
  Receive Date: 20040503
  Receipt Date: 20040415
  Transmission Date: 20050107
  Serious: Yes (Hospitalization)
  Sender: FDA-Public Use
  Company Number: A02200300435

PATIENT
  Age: 67 Year
  Sex: Male

DRUGS (3)
  1. DANAZOL [Suspect]
     Indication: AUTOIMMUNE THROMBOCYTOPENIA
     Dosage: 200 MG BID
     Route: 048
     Dates: start: 20020915, end: 20030120
  2. LERCANIDIPINE [Suspect]
     Dosage: 10 MG OD
     Route: 048
     Dates: end: 20030204
  3. LIPANTHNYL (FENOFIBRATE) CAPSULE 200MG [Suspect]
     Indication: HYPERCHOLESTEROLAEMIA
     Dosage: 200 MG OD
     Route: 048
     Dates: end: 20040204

REACTIONS (28)
  - ACUTE RESPIRATORY FAILURE [None]
  - ANAEMIA [None]
  - ARRHYTHMIA [None]
  - AUTOIMMUNE THROMBOCYTOPENIA [None]
  - BLAST CELLS PRESENT [None]
  - BLOOD POTASSIUM INCREASED [None]
  - COLITIS ULCERATIVE [None]
  - CONDITION AGGRAVATED [None]
  - CONGESTIVE CARDIOMYOPATHY [None]
  - CYTOMEGALOVIRUS INFECTION [None]
  - DUODENITIS [None]
  - ENTERITIS NECROTICANS [None]
  - EROSIVE DUODENITIS [None]
  - GENERAL PHYSICAL HEALTH DETERIORATION [None]
  - HAEMODIALYSIS [None]
  - HEPATITIS CHOLESTATIC [None]
  - HEPATITIS FULMINANT [None]
  - LACTIC ACIDOSIS [None]
  - NECROTISING COLITIS [None]
  - PANCREATITIS [None]
  - RENAL FAILURE ACUTE [None]
  - RENAL FAILURE CHRONIC [None]
  - RENAL TUBULAR NECROSIS [None]
  - RESPIRATORY FUME INHALATION DISORDER [None]
  - SEPSIS [None]
  - VENTRICULAR FIBRILLATION [None]
  - WEIGHT DECREASED [None]
  - WHITE BLOOD CELL COUNT INCREASED [None]
